FAERS Safety Report 7323038-3 (Version None)
Quarter: 2011Q1

REPORT INFORMATION
  Report Type: 
  Country: None (occurrence: None)
  Receive Date: 20110301
  Receipt Date: 20110301
  Transmission Date: 20110831
  Serious: Yes (Hospitalization)
  Sender: FDA-Public Use
  Company Number: PHHO2008FR11018

PATIENT
  Sex: Female
  Weight: 62 kg

DRUGS (2)
  1. PLACEBO [Suspect]
     Indication: CARCINOID TUMOUR
     Dosage: PLACEBO
     Route: 048
     Dates: start: 20080214
  2. SANDOSTATIN LAR [Suspect]
     Indication: CARCINOID SYNDROME
     Dosage: DOUBLE BLIND
     Route: 048
     Dates: start: 20080214

REACTIONS (4)
  - RENAL COLIC [None]
  - ANAEMIA [None]
  - RECTAL HAEMORRHAGE [None]
  - ABDOMINAL PAIN [None]
